FAERS Safety Report 17116847 (Version 2)
Quarter: 2020Q1

REPORT INFORMATION
  Report Type: Report from Study
  Country: JP (occurrence: JP)
  Receive Date: 20191205
  Receipt Date: 20200123
  Transmission Date: 20200409
  Serious: No
  Sender: FDA-Public Use
  Company Number: JP-VIFOR (INTERNATIONAL) INC.-VIT-2019-15472

PATIENT
  Age: 66 Year
  Sex: Female
  Weight: 58.3 kg

DRUGS (22)
  1. FOSRENOL [Concomitant]
     Active Substance: LANTHANUM CARBONATE
     Indication: HYPERPHOSPHATAEMIA
     Route: 048
  2. LIVALO [Concomitant]
     Active Substance: PITAVASTATIN CALCIUM
     Route: 048
  3. GASMOTIN [Concomitant]
     Active Substance: MOSAPRIDE CITRATE
     Route: 048
  4. LANSOPRAZOLE. [Concomitant]
     Active Substance: LANSOPRAZOLE
     Route: 048
  5. ALDACTONE A [Concomitant]
     Active Substance: SPIRONOLACTONE
     Route: 048
  6. ARGAMATE [Concomitant]
     Active Substance: CALCIUM POLYSTYRENE SULFONATE
     Route: 048
     Dates: end: 20160607
  7. ARGAMATE [Concomitant]
     Active Substance: CALCIUM POLYSTYRENE SULFONATE
     Route: 048
     Dates: start: 20160608
  8. MYSLEE [Concomitant]
     Active Substance: ZOLPIDEM TARTRATE
     Route: 048
  9. ARTIST [Concomitant]
     Active Substance: CARVEDILOL
     Route: 048
  10. URIADEC [Concomitant]
     Active Substance: TOPIROXOSTAT
     Route: 048
     Dates: start: 20160923
  11. EPOGIN [Concomitant]
     Active Substance: ERYTHROPOIETIN
     Dates: start: 20170407
  12. ALOSENN [Concomitant]
     Route: 048
  13. MICARDIS [Concomitant]
     Active Substance: TELMISARTAN
     Route: 048
  14. EPOETIN ALFA BS [Concomitant]
     Active Substance: ERYTHROPOIETIN
     Dates: start: 20160819, end: 20170303
  15. VELPHORO [Suspect]
     Active Substance: FERRIC OXYHYDROXIDE
     Indication: HYPERPHOSPHATAEMIA
     Route: 048
     Dates: start: 20160610
  16. ROCALTROL [Concomitant]
     Active Substance: CALCITRIOL
     Route: 048
     Dates: end: 20170119
  17. RISUMIC [Concomitant]
     Active Substance: AMEZINIUM METILSULFATE
     Route: 048
  18. EPOETIN ALFA BS [Concomitant]
     Active Substance: ERYTHROPOIETIN
     Dates: start: 20170306, end: 20170331
  19. BONVIVA [Concomitant]
     Active Substance: IBANDRONATE SODIUM
     Route: 042
  20. BAYASPIRIN [Concomitant]
     Active Substance: ASPIRIN
     Route: 048
  21. NIFEDIPINE CR [Concomitant]
     Active Substance: NIFEDIPINE
     Route: 048
  22. OXAROL [Concomitant]
     Active Substance: MAXACALCITOL
     Route: 042
     Dates: start: 20170123

REACTIONS (1)
  - Hyperphosphataemia [Recovered/Resolved]

NARRATIVE: CASE EVENT DATE: 20161003
